FAERS Safety Report 4863894-1 (Version None)
Quarter: 2005Q4

REPORT INFORMATION
  Report Type: 
  Country: None (occurrence: None)
  Receive Date: 20051222
  Receipt Date: 20051212
  Transmission Date: 20060501
  Serious: Yes (Hospitalization)
  Sender: FDA-Public Use
  Company Number: JP-BRISTOL-MYERS SQUIBB COMPANY-13220728

PATIENT
  Sex: Male

DRUGS (5)
  1. MEVALOTIN [Suspect]
     Indication: HYPERLIPIDAEMIA
     Route: 048
     Dates: start: 20020802, end: 20051110
  2. RENIVACE [Concomitant]
     Indication: HYPERTENSION
     Dates: start: 20010901, end: 20051128
  3. ARTIST [Concomitant]
     Indication: ANGINA PECTORIS
     Dates: start: 20000601, end: 20051128
  4. PANALDINE [Concomitant]
     Indication: ANGINA PECTORIS
     Dates: start: 20021101, end: 20051128
  5. ASPIRIN [Concomitant]
     Indication: ANGINA PECTORIS
     Dates: start: 20010301, end: 20051128

REACTIONS (2)
  - CELLULITIS [None]
  - RHABDOMYOLYSIS [None]
